FAERS Safety Report 12165818 (Version 3)
Quarter: 2016Q2

REPORT INFORMATION
  Report Type: Report from Study
  Country: US (occurrence: US)
  Receive Date: 20160309
  Receipt Date: 20160520
  Transmission Date: 20160815
  Serious: Yes (Hospitalization, Other)
  Sender: FDA-Public Use
  Company Number: US-ABBVIE-16P-163-1577344-00

PATIENT
  Age: 70 Year
  Sex: Male
  Weight: 81.18 kg

DRUGS (1)
  1. VIEKIRA PAK [Suspect]
     Active Substance: DASABUVIR\OMBITASVIR\PARITAPREVIR\RITONAVIR
     Indication: CHRONIC HEPATITIS C
     Dosage: TWO 12.5/75/50MG ONCE DAILY,ONE 250MG TWICE DAILY
     Route: 048
     Dates: start: 20160210, end: 20160229

REACTIONS (3)
  - Hepatic failure [Unknown]
  - Encephalopathy [Unknown]
  - Hyperammonaemia [Unknown]

NARRATIVE: CASE EVENT DATE: 20160229
